FAERS Safety Report 13416064 (Version 1)
Quarter: 2017Q2

REPORT INFORMATION
  Report Type: Spontaneous
  Country: BG (occurrence: BG)
  Receive Date: 20170407
  Receipt Date: 20170407
  Transmission Date: 20170830
  Serious: Yes (Hospitalization, Other)
  Sender: FDA-Public Use
  Company Number: PHHY2017BG050698

PATIENT
  Age: 37 Year
  Sex: Female
  Weight: 44 kg

DRUGS (1)
  1. GILENYA [Suspect]
     Active Substance: FINGOLIMOD HYDROCHLORIDE
     Indication: MULTIPLE SCLEROSIS
     Dosage: 0.5 MG, UNK
     Route: 048
     Dates: start: 201307, end: 201703

REACTIONS (5)
  - Haemoglobin decreased [Unknown]
  - Cervix carcinoma [Recovering/Resolving]
  - Red blood cell count decreased [Unknown]
  - Metastases to lymph nodes [Unknown]
  - Haematocrit decreased [Unknown]

NARRATIVE: CASE EVENT DATE: 20170220
